FAERS Safety Report 8094003-6 (Version None)
Quarter: 2012Q1

REPORT INFORMATION
  Report Type: 
  Country: None (occurrence: None)
  Receive Date: 20120131
  Receipt Date: 20120125
  Transmission Date: 20120608
  Serious: Yes (Death, Life-Threatening, Hospitalization, Other)
  Sender: FDA-Public Use
  Company Number: PHHY2012MX007146

PATIENT
  Sex: Male

DRUGS (4)
  1. ZOMETA [Suspect]
     Dosage: 4 MG, UNK
     Dates: start: 20111216
  2. NORVASC [Concomitant]
  3. BISOPROLOL FUMARATE [Concomitant]
  4. INSULIN [Concomitant]

REACTIONS (1)
  - HAEMORRHAGIC STROKE [None]
